FAERS Safety Report 18425399 (Version 1)
Quarter: 2020Q4

REPORT INFORMATION
  Report Type: Spontaneous
  Country: US (occurrence: US)
  Receive Date: 20201026
  Receipt Date: 20201026
  Transmission Date: 20210114
  Serious: Yes (Hospitalization)
  Sender: FDA-Public Use
  Company Number: None

PATIENT
  Age: 68 Year
  Sex: Male
  Weight: 58.5 kg

DRUGS (1)
  1. CAMPTOSAR [Suspect]
     Active Substance: IRINOTECAN HYDROCHLORIDE
     Dates: end: 20200909

REACTIONS (4)
  - Pain in extremity [None]
  - Abdominal infection [None]
  - Febrile neutropenia [None]
  - Klebsiella sepsis [None]

NARRATIVE: CASE EVENT DATE: 20200927
